FAERS Safety Report 17543764 (Version 1)
Quarter: 2020Q1

REPORT INFORMATION
  Report Type: Spontaneous
  Country: US (occurrence: US)
  Receive Date: 20200306
  Receipt Date: 20200306
  Transmission Date: 20200409
  Serious: Yes (Hospitalization)
  Sender: FDA-Public Use
  Company Number: None

PATIENT
  Sex: Male

DRUGS (22)
  1. HUMIRA [Suspect]
     Active Substance: ADALIMUMAB
     Indication: COLITIS ULCERATIVE
     Route: 058
     Dates: start: 20200219
  2. METHYLPRED [Concomitant]
     Active Substance: METHYLPREDNISOLONE
  3. ALBUTEROL NEB [Concomitant]
     Active Substance: ALBUTEROL
  4. CHOLESYRAM [Concomitant]
  5. DICLOFENAC [Concomitant]
     Active Substance: DICLOFENAC
  6. MORPHINE SUL [Concomitant]
     Active Substance: MORPHINE SULFATE
  7. VANCOMYCIN [Concomitant]
     Active Substance: VANCOMYCIN
  8. ADVAIR DISKUS AER HFA [Concomitant]
  9. FUROSEMIDE. [Concomitant]
     Active Substance: FUROSEMIDE
  10. HYDROCORT AC [Concomitant]
  11. METRONIDAZOL [Concomitant]
     Active Substance: METRONIDAZOLE
  12. OXYCODONE AND ACETAMINOPHEN [Concomitant]
     Active Substance: ACETAMINOPHEN\OXYCODONE HYDROCHLORIDE
  13. TRAMADOL HCL [Concomitant]
     Active Substance: TRAMADOL HYDROCHLORIDE
  14. AZITHROMYCIN ANHYDROUS. [Concomitant]
     Active Substance: AZITHROMYCIN ANHYDROUS
  15. GABAPENTIN. [Concomitant]
     Active Substance: GABAPENTIN
  16. NO DRUG NAME [Concomitant]
  17. ALBUTEROL. [Concomitant]
     Active Substance: ALBUTEROL
  18. BUDESONIDE. [Concomitant]
     Active Substance: BUDESONIDE
  19. CIPROFLOXACIN. [Concomitant]
     Active Substance: CIPROFLOXACIN
  20. HYDROCO/APAP [Concomitant]
     Active Substance: ACETAMINOPHEN\HYDROCODONE
  21. CELECOXIB. [Concomitant]
     Active Substance: CELECOXIB
  22. PRAVASTATIN. [Concomitant]
     Active Substance: PRAVASTATIN

REACTIONS (1)
  - Pulmonary embolism [None]
